FAERS Safety Report 4304580-6 (Version None)
Quarter: 2004Q1

REPORT INFORMATION
  Report Type: 
  Country: None (occurrence: None)
  Receive Date: 20040224
  Receipt Date: 20040209
  Transmission Date: 20041129
  Serious: Yes (Other)
  Sender: FDA-Public Use
  Company Number: T03-GER-05096-01

PATIENT
  Age: 60 Year
  Sex: Female

DRUGS (5)
  1. ESCITALOPRAM OXALATE [Suspect]
     Indication: DEPRESSION
     Dosage: 10 MG QD PO
     Route: 048
     Dates: start: 20031119, end: 20031201
  2. CELEBREX [Concomitant]
  3. OMEP(OMEPRAZOLE) [Concomitant]
  4. PALLADON(HYDROMORPHONE HYDROCHLORIDE) [Concomitant]
  5. METOCLOPRAMIDE [Concomitant]

REACTIONS (1)
  - LEUKOCYTOCLASTIC VASCULITIS [None]
